FAERS Safety Report 9832306 (Version 2)
Quarter: 2014Q1

REPORT INFORMATION
  Report Type: Spontaneous
  Country: US (occurrence: US)
  Receive Date: 20140121
  Receipt Date: 20140121
  Transmission Date: 20141002
  Serious: No
  Sender: FDA-Public Use
  Company Number: US-GLAXOSMITHKLINE-A0806177A

PATIENT
  Age: 49 Year
  Sex: Male

DRUGS (2)
  1. AVANDARYL [Suspect]
     Indication: DIABETES MELLITUS
     Route: 048
     Dates: start: 20060414, end: 200606
  2. AVANDIA [Suspect]
     Indication: DIABETES MELLITUS
     Dosage: 4MG PER DAY
     Route: 048
     Dates: start: 20060606, end: 200707

REACTIONS (3)
  - Cardiac disorder [Not Recovered/Not Resolved]
  - Palpitations [Unknown]
  - Cardiomyopathy [Unknown]
